FAERS Safety Report 7436779-4 (Version None)
Quarter: 2011Q2

REPORT INFORMATION
  Report Type: 
  Country: None (occurrence: None)
  Receive Date: 20110426
  Receipt Date: 20110421
  Transmission Date: 20111010
  Serious: Yes (Death)
  Sender: FDA-Public Use
  Company Number: US-ASTELLAS-2011US001417

PATIENT
  Sex: Male
  Weight: 79 kg

DRUGS (13)
  1. PLAVIX [Concomitant]
     Indication: PRODUCT USED FOR UNKNOWN INDICATION
     Dosage: 75 MG, UID/QD
     Route: 065
     Dates: start: 20101213
  2. ANALGESICS [Concomitant]
     Indication: PRODUCT USED FOR UNKNOWN INDICATION
     Dosage: UNK
     Route: 065
     Dates: start: 20080418
  3. LANOXIN [Concomitant]
     Indication: PRODUCT USED FOR UNKNOWN INDICATION
     Dosage: 0.25 MG, UID/QD
     Route: 065
     Dates: start: 20101213
  4. LORTAB [Concomitant]
     Indication: PRODUCT USED FOR UNKNOWN INDICATION
     Dosage: 7.5/500, 1 EVERY 6 HOURS PRN
     Route: 065
     Dates: start: 20110202
  5. LOPID [Concomitant]
     Indication: PRODUCT USED FOR UNKNOWN INDICATION
     Dosage: 600 MG, BID
     Route: 065
     Dates: start: 20101213
  6. LOTREL [Concomitant]
     Indication: PRODUCT USED FOR UNKNOWN INDICATION
     Dosage: 10/20, 1 CAPSULE ONCE DAILY
     Route: 065
     Dates: start: 20101213
  7. ASPIRIN [Concomitant]
     Indication: PRODUCT USED FOR UNKNOWN INDICATION
     Dosage: 81 MG, UID/QD
     Route: 065
     Dates: start: 20090120
  8. ALLOPURINOL [Concomitant]
     Indication: PRODUCT USED FOR UNKNOWN INDICATION
     Dosage: 300 MG, UID/QD
     Route: 048
     Dates: start: 20110202
  9. HUMULIN R [Concomitant]
     Indication: PRODUCT USED FOR UNKNOWN INDICATION
     Dosage: 100 U/ML, UNKNOWN/D
     Route: 065
     Dates: start: 20110328
  10. HUMULIN N [Concomitant]
     Indication: PRODUCT USED FOR UNKNOWN INDICATION
     Dosage: 30 U, BID
     Route: 065
     Dates: start: 20081024
  11. PROGRAF [Suspect]
     Indication: LIVER TRANSPLANT
     Dosage: 3 MG, BID
     Route: 065
     Dates: start: 20090816
  12. PROGRAF [Suspect]
     Dosage: 3 MG, BID
     Route: 065
     Dates: start: 20110322
  13. NIZORAL [Concomitant]
     Indication: PRODUCT USED FOR UNKNOWN INDICATION
     Dosage: 2 %, BID
     Route: 061
     Dates: start: 20081024

REACTIONS (1)
  - MYOCARDIAL INFARCTION [None]
